FAERS Safety Report 17914609 (Version 1)
Quarter: 2020Q2

REPORT INFORMATION
  Report Type: Spontaneous
  Country: US (occurrence: US)
  Receive Date: 20200619
  Receipt Date: 20200619
  Transmission Date: 20200714
  Serious: No
  Sender: FDA-Public Use
  Company Number: US-ALVOGEN-2020-ALVOGEN-107836

PATIENT

DRUGS (1)
  1. METHYLPHENIDATE HYDROCHLORIDE. [Suspect]
     Active Substance: METHYLPHENIDATE HYDROCHLORIDE
     Indication: PRODUCT USED FOR UNKNOWN INDICATION
     Dates: start: 20191128

REACTIONS (11)
  - Appetite disorder [Unknown]
  - Sexual dysfunction [Unknown]
  - Drug ineffective [Unknown]
  - Product substitution issue [Unknown]
  - Insomnia [Unknown]
  - Lethargy [Unknown]
  - Withdrawal syndrome [Unknown]
  - Temperature regulation disorder [Unknown]
  - Palpitations [Unknown]
  - Disturbance in attention [Unknown]
  - Anxiety [Unknown]
